FAERS Safety Report 6630667-9 (Version None)
Quarter: 2010Q1

REPORT INFORMATION
  Report Type: 
  Country: None (occurrence: None)
  Receive Date: 20100311
  Receipt Date: 20090528
  Transmission Date: 20100710
  Serious: No
  Sender: FDA-Public Use
  Company Number: US-BIOGENIDEC-2009BI016219

PATIENT
  Sex: Male

DRUGS (4)
  1. AVONEX [Suspect]
     Indication: MULTIPLE SCLEROSIS
     Route: 030
     Dates: start: 20090101
  2. BUSPIRONE HCL [Concomitant]
     Indication: ANXIETY
     Route: 048
     Dates: start: 20080101
  3. SERTRELINE [Concomitant]
     Indication: ANXIETY
     Route: 048
     Dates: start: 20080101
  4. MEDICATION(NOS) [Concomitant]
     Indication: HYPERTENSION
     Route: 048

REACTIONS (2)
  - GAIT DISTURBANCE [None]
  - WEIGHT INCREASED [None]
